FAERS Safety Report 11794213 (Version 3)
Quarter: 2016Q1

REPORT INFORMATION
  Report Type: Report from Study
  Country: IT (occurrence: IT)
  Receive Date: 20151202
  Receipt Date: 20160303
  Transmission Date: 20160525
  Serious: Yes (Other)
  Sender: FDA-Public Use
  Company Number: IT-MERCK-1506ITA004780

PATIENT
  Age: 57 Year
  Sex: Male

DRUGS (7)
  1. RIBAVIRIN. [Suspect]
     Active Substance: RIBAVIRIN
     Dosage: 1000 MG, QD
     Route: 048
     Dates: start: 20150220, end: 20150828
  2. BOCEPREVIR [Suspect]
     Active Substance: BOCEPREVIR
     Indication: CHRONIC HEPATITIS C
     Dosage: 2400 MG, QD
     Route: 048
     Dates: start: 20141023, end: 20150828
  3. PEGINTERFERON ALFA-2B [Suspect]
     Active Substance: PEGINTERFERON ALFA-2B
     Indication: CHRONIC HEPATITIS C
     Dosage: 120 MICROGRAM, QW
     Route: 058
     Dates: start: 20140926, end: 20150828
  4. EPOETIN [Concomitant]
     Active Substance: ERYTHROPOIETIN
     Dosage: TOTAL DAILY DOSE: 20000 (UNITS NOT PROVIDED), QW
     Route: 058
     Dates: start: 20141120, end: 20150825
  5. FILGRASTIM [Concomitant]
     Active Substance: FILGRASTIM
     Indication: NEUTROPENIA
     Dosage: TOTAL DAILY DOSE: 30000 (UNIT NOT PROVIDED), EVERY 2 WEEKS
     Route: 058
     Dates: start: 20150108, end: 20150825
  6. RIBAVIRIN. [Suspect]
     Active Substance: RIBAVIRIN
     Indication: CHRONIC HEPATITIS C
     Dosage: 1200 MG, QD
     Route: 048
     Dates: start: 20140926, end: 20150219
  7. EPOETIN [Concomitant]
     Active Substance: ERYTHROPOIETIN
     Indication: ANAEMIA
     Dosage: TOTAL DAILY DOSE: 10000 (UNITS NOT PROVIDED), QW
     Route: 058
     Dates: start: 20141030, end: 20141120

REACTIONS (1)
  - Thrombocytopenia [Not Recovered/Not Resolved]

NARRATIVE: CASE EVENT DATE: 20150305
